FAERS Safety Report 5024183-8 (Version None)
Quarter: 2006Q2

REPORT INFORMATION
  Report Type: 
  Country: None (occurrence: None)
  Receive Date: 20060607
  Receipt Date: 20060523
  Transmission Date: 20061013
  Serious: Yes (Other)
  Sender: FDA-Public Use
  Company Number: FR200602005364

PATIENT
  Age: 56 Year
  Sex: Female
  Weight: 48 kg

DRUGS (6)
  1. FORTEO [Suspect]
     Indication: OSTEOPOROSIS
     Dosage: 20 UG, DAILY (1/D), SUBCUTANEOUS
     Route: 058
     Dates: start: 20051107
  2. FORTEO PEN (FORTEO PEN) PEN DISPOSABLE [Concomitant]
  3. THIOCOLCHICOSIDE (THIOCOLCHICOSIDE [Concomitant]
  4. OROCAL D (3)                     (CALCIUM CARBONATE, COLECALCIFEROL) [Concomitant]
  5. ESOMEPRAZOLE                   (ESOMEPRAZOLE) [Concomitant]
  6. EFFERALGAN CODEINE                    (CODEINE PHOSPHATE, PARACETAMOL) [Concomitant]

REACTIONS (1)
  - WEIGHT DECREASED [None]
